FAERS Safety Report 9249521 (Version 1)
Quarter: 2013Q2

REPORT INFORMATION
  Report Type: Spontaneous
  Country: BR (occurrence: BR)
  Receive Date: 20130423
  Receipt Date: 20130423
  Transmission Date: 20140414
  Serious: No
  Sender: FDA-Public Use
  Company Number: BR-ELI_LILLY_AND_COMPANY-BR201304004760

PATIENT
  Age: 67 Year
  Sex: Male
  Weight: 90 kg

DRUGS (3)
  1. CIALIS [Suspect]
     Indication: PROSTATECTOMY
     Dosage: 5 MG, EACH EVENING
     Route: 048
     Dates: start: 20130327
  2. ATENOLOL [Concomitant]
     Indication: HYPERTENSION
     Dosage: 25 MG, BID
     Route: 065
     Dates: start: 2010
  3. RIVOTRIL [Concomitant]
     Indication: NERVOUSNESS
     Dosage: 0.5 MG, PRN
     Route: 065
     Dates: start: 2011

REACTIONS (3)
  - Vision blurred [Not Recovered/Not Resolved]
  - Lacrimation increased [Not Recovered/Not Resolved]
  - Back pain [Not Recovered/Not Resolved]
